FAERS Safety Report 5720766-8 (Version None)
Quarter: 2008Q2

REPORT INFORMATION
  Report Type: 
  Country: None (occurrence: None)
  Receive Date: 20080429
  Receipt Date: 20080423
  Transmission Date: 20081010
  Serious: Yes (Death, Disabling, Other)
  Sender: FDA-Public Use
  Company Number: PHHY2008JP01911

PATIENT
  Age: 71 Year
  Sex: Female
  Weight: 39 kg

DRUGS (2)
  1. AREDIA [Suspect]
     Indication: METASTASES TO BONE
     Dosage: 30 MG, QMO
     Route: 042
     Dates: start: 20041101, end: 20060701
  2. ZOMETA [Suspect]
     Indication: METASTASES TO BONE
     Dosage: 4 MG, QMO
     Route: 042
     Dates: start: 20060701, end: 20061101

REACTIONS (12)
  - ABSCESS MANAGEMENT [None]
  - BONE DISORDER [None]
  - CARDIO-RESPIRATORY ARREST [None]
  - GENERAL PHYSICAL HEALTH DETERIORATION [None]
  - GINGIVAL ABSCESS [None]
  - GINGIVAL SWELLING [None]
  - IMPAIRED HEALING [None]
  - METASTASES TO LUNG [None]
  - OSTEOMYELITIS [None]
  - OSTEONECROSIS [None]
  - PRIMARY SEQUESTRUM [None]
  - TOOTH EXTRACTION [None]
